FAERS Safety Report 5196016-0 (Version None)
Quarter: 2006Q4

REPORT INFORMATION
  Report Type: 
  Country: None (occurrence: None)
  Receive Date: 20061227
  Receipt Date: 20061215
  Transmission Date: 20070319
  Serious: Yes (Death)
  Sender: FDA-Public Use
  Company Number: 8020891

PATIENT
  Age: 29 Year
  Sex: Male

DRUGS (2)
  1. KEPPRA [Suspect]
     Dosage: 750 MG 2/D PO
     Route: 048
     Dates: start: 20060801, end: 20060904
  2. VALPROATE SODIUM [Concomitant]

REACTIONS (2)
  - DRUG DOSE OMISSION [None]
  - SUDDEN UNEXPLAINED DEATH IN EPILEPSY [None]
